FAERS Safety Report 19094690 (Version 1)
Quarter: 2021Q2

REPORT INFORMATION
  Report Type: Spontaneous
  Country: JP (occurrence: JP)
  Receive Date: 20210405
  Receipt Date: 20210405
  Transmission Date: 20210717
  Serious: Yes (Other)
  Sender: FDA-Public Use
  Company Number: JP-CELGENEUS-JPN-20210308067

PATIENT
  Age: 69 Year
  Sex: Male

DRUGS (2)
  1. CYRAMZA [Suspect]
     Active Substance: RAMUCIRUMAB
     Indication: GASTRIC CANCER
     Route: 041
  2. ABRAXANE [Suspect]
     Active Substance: PACLITAXEL
     Indication: GASTRIC CANCER
     Route: 041

REACTIONS (2)
  - Angioedema [Unknown]
  - Portal vein pressure increased [Unknown]
